FAERS Safety Report 25766262 (Version 2)
Quarter: 2025Q3

REPORT INFORMATION
  Report Type: Report from Study
  Country: US (occurrence: US)
  Receive Date: 20250905
  Receipt Date: 20250930
  Transmission Date: 20251021
  Serious: Yes (Other)
  Sender: ABBVIE
  Company Number: US-ABBVIE-6445869

PATIENT
  Sex: Female

DRUGS (1)
  1. RINVOQ [Suspect]
     Active Substance: UPADACITINIB
     Indication: Rheumatoid arthritis
     Route: 048
     Dates: start: 20240528

REACTIONS (5)
  - Hysterectomy [Recovered/Resolved]
  - Wound dehiscence [Recovered/Resolved]
  - Accident [Unknown]
  - Scar [Recovered/Resolved]
  - Procedural haemorrhage [Recovered/Resolved]
